FAERS Safety Report 14044337 (Version 6)
Quarter: 2021Q1

REPORT INFORMATION
  Report Type: Report from Study
  Country: US (occurrence: US)
  Receive Date: 20171004
  Receipt Date: 20210218
  Transmission Date: 20210419
  Serious: Yes (Other)
  Sender: FDA-Public Use
  Company Number: US-ASTELLAS-2017US039498

PATIENT
  Age: 62 Year
  Sex: Male

DRUGS (3)
  1. ENZALUTAMIDE [Suspect]
     Active Substance: ENZALUTAMIDE
     Indication: PROSTATE CANCER
     Route: 048
     Dates: start: 20140225
  2. LUPRON [Suspect]
     Active Substance: LEUPROLIDE ACETATE
     Indication: PRODUCT USED FOR UNKNOWN INDICATION
     Dosage: UNK UNK, UNKNOWN FREQ.
     Route: 065
  3. ENZALUTAMIDE [Suspect]
     Active Substance: ENZALUTAMIDE
     Route: 048
     Dates: start: 20191218

REACTIONS (14)
  - Aortic aneurysm [Not Recovered/Not Resolved]
  - Splenomegaly [Not Recovered/Not Resolved]
  - Memory impairment [Unknown]
  - Haematuria [Not Recovered/Not Resolved]
  - Product physical issue [Unknown]
  - Product odour abnormal [Unknown]
  - Bone density decreased [Not Recovered/Not Resolved]
  - Incontinence [Not Recovered/Not Resolved]
  - Emotional disorder [Unknown]
  - Pollakiuria [Not Recovered/Not Resolved]
  - Fatigue [Not Recovered/Not Resolved]
  - Weight increased [Unknown]
  - Feeling abnormal [Recovered/Resolved]
  - Asthenia [Unknown]

NARRATIVE: CASE EVENT DATE: 20141008
